FAERS Safety Report 17769724 (Version 8)
Quarter: 2024Q4

REPORT INFORMATION
  Report Type: Spontaneous
  Country: US (occurrence: US)
  Receive Date: 20200512
  Receipt Date: 20241230
  Transmission Date: 20250115
  Serious: No
  Sender: PFIZER
  Company Number: US-PFIZER INC-2020188893

PATIENT
  Age: 72 Year
  Sex: Female

DRUGS (2)
  1. IBRANCE [Suspect]
     Active Substance: PALBOCICLIB
     Indication: Breast cancer female
     Dosage: 125 MG, CYCLIC (ONCE DAILY FOR 21 DAYS WITH 7 DAYS OFF DURING EACH CYCLE OF 28 DAYS)
  2. IBRANCE [Suspect]
     Active Substance: PALBOCICLIB
     Dosage: 100 MG, CYCLIC (ONCE DAILY FOR 21 DAYS WITH 7 DAYS OFF DURING EACH CYCLE OF 28 DAYS)

REACTIONS (3)
  - White blood cell count decreased [Unknown]
  - Abdominal discomfort [Recovering/Resolving]
  - Nausea [Recovering/Resolving]
